FAERS Safety Report 21928482 (Version 1)
Quarter: 2023Q1

REPORT INFORMATION
  Report Type: Spontaneous
  Country: PA (occurrence: PA)
  Receive Date: 20230130
  Receipt Date: 20230130
  Transmission Date: 20230418
  Serious: Yes (Other)
  Sender: FDA-Public Use
  Company Number: PA-drreddys-SPO/PAN/23/0160350

PATIENT
  Age: 77 Year
  Sex: Male
  Weight: 63 kg

DRUGS (1)
  1. AZACITIDINE [Suspect]
     Active Substance: AZACITIDINE
     Indication: Myelodysplastic syndrome
     Dosage: 130MG PER DAY FOR 7 DAYS (65MG PER INJECTION #2 FOR 2 DAYS).

REACTIONS (1)
  - Drug ineffective [Unknown]
